FAERS Safety Report 9924963 (Version 1)
Quarter: 2014Q1

REPORT INFORMATION
  Report Type: Spontaneous
  Country: CA (occurrence: None)
  Receive Date: 20140221
  Receipt Date: 20140221
  Transmission Date: 20141002
  Serious: Yes (Other)
  Sender: FDA-Public Use
  Company Number: CA-014727

PATIENT
  Age: 75 Year
  Sex: Male

DRUGS (2)
  1. FIRMAGON [Suspect]
     Indication: PROSTATE CANCER
     Route: 058
     Dates: start: 20120601
  2. CASODEX [Concomitant]

REACTIONS (7)
  - Nausea [None]
  - Dizziness [None]
  - Vomiting [None]
  - Asthenia [None]
  - Hypoaesthesia [None]
  - Cerebrovascular accident [None]
  - Feeling abnormal [None]
